FAERS Safety Report 5251457-8 (Version None)
Quarter: 2007Q1

REPORT INFORMATION
  Report Type: 
  Country: None (occurrence: None)
  Receive Date: 20070228
  Receipt Date: 20060511
  Transmission Date: 20070707
  Serious: No
  Sender: FDA-Public Use
  Company Number: US-GLAXOSMITHKLINE-A0605231A

PATIENT
  Age: 15 Year
  Sex: Female

DRUGS (8)
  1. LAMICTAL [Suspect]
     Indication: EPILEPSY
     Dosage: 100MG TWICE PER DAY
     Route: 048
  2. ADDERALL XR 10 [Concomitant]
  3. UROCIT-K [Concomitant]
  4. PROTONIX [Concomitant]
  5. IRON [Concomitant]
  6. VITAMIN [Concomitant]
  7. STRATTERA [Concomitant]
  8. CLARITIN [Concomitant]

REACTIONS (1)
  - COUGH [None]
